FAERS Safety Report 15238144 (Version 1)
Quarter: 2018Q3

REPORT INFORMATION
  Report Type: Spontaneous
  Country: CN (occurrence: CN)
  Receive Date: 20180803
  Receipt Date: 20180803
  Transmission Date: 20181010
  Serious: Yes (Other)
  Sender: FDA-Public Use
  Company Number: CN-PFIZER INC-2018310172

PATIENT
  Age: 60 Year
  Sex: Male

DRUGS (3)
  1. MEDROL [Suspect]
     Active Substance: METHYLPREDNISOLONE
     Indication: INFLAMMATION
  2. MEDROL [Suspect]
     Active Substance: METHYLPREDNISOLONE
     Indication: INTERVERTEBRAL DISC PROTRUSION
     Dosage: 8 MG, 2X/DAY
     Route: 048
     Dates: start: 20180523, end: 20180525
  3. MEDROL [Suspect]
     Active Substance: METHYLPREDNISOLONE
     Indication: ANALGESIC THERAPY

REACTIONS (2)
  - Hiccups [Recovered/Resolved]
  - Product use in unapproved indication [Recovered/Resolved]

NARRATIVE: CASE EVENT DATE: 20180523
